FAERS Safety Report 23226395 (Version 1)
Quarter: 2023Q4

REPORT INFORMATION
  Report Type: Report from Study
  Country: EG (occurrence: EG)
  Receive Date: 20231124
  Receipt Date: 20231124
  Transmission Date: 20240110
  Serious: Yes (Death)
  Sender: FDA-Public Use
  Company Number: EG-002147023-NVSC2021EG192208

PATIENT
  Age: 31 Year
  Sex: Male

DRUGS (12)
  1. COSENTYX [Suspect]
     Active Substance: SECUKINUMAB
     Indication: Rheumatic disorder
     Dosage: 150 MG, QW
     Route: 058
     Dates: start: 202002, end: 202004
  2. COSENTYX [Suspect]
     Active Substance: SECUKINUMAB
     Indication: Psoriatic arthropathy
     Dosage: UNK, QW (2 PREFILLED PENS WEEKLY (TOTAL OF 6 PENS) IN THE 1ST 28 DAYS THEN 2 PREFILLED PENS MONTHLY
     Route: 058
     Dates: start: 2020
  3. COSENTYX [Suspect]
     Active Substance: SECUKINUMAB
     Dosage: 150 MG, QMO
     Route: 058
     Dates: start: 20210804
  4. COSENTYX [Suspect]
     Active Substance: SECUKINUMAB
     Dosage: UNK, QW (2  PREFILLED PENS WEEKLY (TOTAL OF 6 PENS) IN THE 1ST 28 DAYS THEN 2 PREFILLED PENS MONTHLY
     Route: 058
     Dates: start: 202109, end: 202201
  5. NEURONTIN [Concomitant]
     Active Substance: GABAPENTIN
     Indication: Neuralgia
     Dosage: 3 DOSAGE FORM, QD
     Route: 065
  6. NEURONTIN [Concomitant]
     Active Substance: GABAPENTIN
     Dosage: 2 DOSAGE FORM, BID (1 TABLET IN MORNING AND 1 AT NIGHT)
     Route: 065
     Dates: start: 2020
  7. DIMRA [Concomitant]
     Indication: Muscle relaxant therapy
     Dosage: 3 DOSAGE FORM, QD
     Route: 065
  8. DIMRA [Concomitant]
     Dosage: UNK, QD (2 OR 3 TABLETS DAILY)
     Route: 065
     Dates: start: 2018
  9. METHOTREXATE [Concomitant]
     Active Substance: METHOTREXATE
     Indication: Product used for unknown indication
     Dosage: UNK UNK, QW (1 CM PER WEEK)
     Route: 058
     Dates: end: 202102
  10. METHOTREXATE [Concomitant]
     Active Substance: METHOTREXATE
     Indication: Product used for unknown indication
     Dosage: 3 DOSAGE FORM, Q2W
     Route: 065
  11. CIMZIA [Concomitant]
     Active Substance: CERTOLIZUMAB PEGOL
     Indication: Psoriatic arthropathy
     Dosage: UNK (2 SYRINGES WEEKLY AT THE 1ST MONTH THEN 2 SYRINGES MONTHLY EITHER AT ONCE OR ON DIFFERENT DAYS
     Route: 065
     Dates: start: 2020
  12. LYRICA [Concomitant]
     Active Substance: PREGABALIN
     Indication: Neuralgia
     Dosage: UNK
     Route: 065
     Dates: start: 2018, end: 2020

REACTIONS (10)
  - Oedema [Fatal]
  - Mental disorder [Not Recovered/Not Resolved]
  - Depression [Not Recovered/Not Resolved]
  - Decreased appetite [Not Recovered/Not Resolved]
  - Weight decreased [Not Recovered/Not Resolved]
  - Arthralgia [Not Recovered/Not Resolved]
  - Incorrect dose administered [Not Recovered/Not Resolved]
  - Product prescribing error [Not Recovered/Not Resolved]
  - Product use in unapproved indication [Unknown]
  - Drug ineffective [Not Recovered/Not Resolved]

NARRATIVE: CASE EVENT DATE: 20200201
